FAERS Safety Report 19080891 (Version 1)
Quarter: 2021Q2

REPORT INFORMATION
  Report Type: Other
  Country: FR (occurrence: FR)
  Receive Date: 20210401
  Receipt Date: 20210401
  Transmission Date: 20210717
  Serious: Yes (Life-Threatening, Hospitalization)
  Sender: FDA-Public Use
  Company Number: FR-CADILA HEALTHCARE LIMITED-FR-ZYDUS-063699

PATIENT

DRUGS (4)
  1. PAROXETINE. [Suspect]
     Active Substance: PAROXETINE
     Indication: SUICIDE ATTEMPT
     Dosage: 1 UNK
     Route: 048
     Dates: start: 20200212, end: 20200212
  2. SERESTA [Suspect]
     Active Substance: OXAZEPAM
     Indication: SUICIDE ATTEMPT
     Dosage: 1 UNK
     Route: 048
     Dates: start: 20200212, end: 20200212
  3. DEPAKOTE [Suspect]
     Active Substance: DIVALPROEX SODIUM
     Indication: SUICIDE ATTEMPT
     Dosage: 1 UNK
     Route: 048
     Dates: start: 20200212, end: 20200212
  4. VERAPAMIL [Suspect]
     Active Substance: VERAPAMIL HYDROCHLORIDE
     Indication: SUICIDE ATTEMPT
     Dosage: 1 UNK
     Route: 048
     Dates: start: 20200212, end: 20200212

REACTIONS (6)
  - Vasoplegia syndrome [Recovered/Resolved]
  - Toxicity to various agents [Recovered/Resolved]
  - Dyspnoea [Recovered/Resolved]
  - Oxygen saturation decreased [Recovered/Resolved]
  - Drug level increased [Recovered/Resolved]
  - Coma scale abnormal [Recovered/Resolved]

NARRATIVE: CASE EVENT DATE: 20200212
